FAERS Safety Report 9500607 (Version 1)
Quarter: 2013Q3

REPORT INFORMATION
  Report Type: Spontaneous
  Country: US (occurrence: US)
  Receive Date: 20130905
  Receipt Date: 20130905
  Transmission Date: 20140515
  Serious: Yes (Other)
  Sender: FDA-Public Use
  Company Number: US-ASTRAZENECA-2013SE66592

PATIENT
  Age: 67 Year
  Sex: Female
  Weight: 59 kg

DRUGS (18)
  1. NEXIUM [Suspect]
     Indication: GASTROOESOPHAGEAL REFLUX DISEASE
     Route: 048
     Dates: start: 2002, end: 201306
  2. PRILOSEC [Suspect]
     Indication: GASTROOESOPHAGEAL REFLUX DISEASE
     Route: 048
     Dates: start: 1989, end: 2002
  3. PRILOSEC [Suspect]
     Indication: GASTROOESOPHAGEAL REFLUX DISEASE
     Route: 048
     Dates: start: 201306
  4. SINGULAIR [Concomitant]
     Indication: MULTIPLE ALLERGIES
     Route: 048
  5. ENALAPRIL [Concomitant]
     Indication: HYPERTENSION
     Route: 048
  6. HYDROCHLOROTHIAZIDE [Concomitant]
     Indication: HYPERTENSION
     Route: 048
  7. VYTORIN [Concomitant]
     Indication: BLOOD CHOLESTEROL INCREASED
     Dosage: 10/40, 1 TABLET DAILY
     Route: 048
  8. NASONEX [Concomitant]
     Indication: MULTIPLE ALLERGIES
     Dosage: 50 MCB, 2 SQPUIRTS PRN
     Route: 045
  9. SUPER B COMPLEX + VITAMIN C [Concomitant]
     Indication: VITAMIN SUPPLEMENTATION
     Route: 048
  10. CALCIUM CITRATE PLUS VITAMIN B [Concomitant]
     Indication: SUPPLEMENTATION THERAPY
     Route: 048
  11. ASPIRIN [Concomitant]
     Indication: SUPPLEMENTATION THERAPY
     Route: 048
  12. FISH OIL [Concomitant]
     Indication: SUPPLEMENTATION THERAPY
     Route: 048
  13. GLUCOSAMINE CHONDRYTIN [Concomitant]
     Indication: SUPPLEMENTATION THERAPY
     Route: 048
  14. WOMENS MULTIVITAMIN [Concomitant]
     Indication: VITAMIN SUPPLEMENTATION
     Route: 048
  15. LEVOTHYROXINE [Concomitant]
     Indication: THYROID DISORDER
     Route: 048
     Dates: start: 1997
  16. ALEVE [Concomitant]
     Indication: PAIN
     Dosage: 2 TABS PRN
     Route: 048
  17. MUCINEX [Concomitant]
     Indication: MULTIPLE ALLERGIES
     Route: 048
  18. BUPOPRION HCL [Concomitant]
     Route: 048

REACTIONS (13)
  - Arthritis [Unknown]
  - Sleep disorder due to general medical condition, insomnia type [Unknown]
  - Throat irritation [Unknown]
  - Weight decreased [Unknown]
  - Decreased appetite [Unknown]
  - Gastrooesophageal reflux disease [Unknown]
  - Onychoclasis [Unknown]
  - Blood cholesterol increased [Unknown]
  - Hypertension [Unknown]
  - Alopecia [Unknown]
  - Drug dose omission [Unknown]
  - Off label use [Unknown]
  - Drug ineffective [Unknown]
